FAERS Safety Report 10969640 (Version 2)
Quarter: 2015Q2

REPORT INFORMATION
  Report Type: Spontaneous
  Country: JP (occurrence: JP)
  Receive Date: 20150331
  Receipt Date: 20150413
  Transmission Date: 20150821
  Serious: Yes (Other)
  Sender: FDA-Public Use
  Company Number: JP-SA-2015SA039380

PATIENT

DRUGS (3)
  1. APIDRA [Concomitant]
     Active Substance: INSULIN GLULISINE
  2. LANTUS SOLOSTAR [Suspect]
     Active Substance: INSULIN GLARGINE
     Route: 058
  3. SOLOSTAR [Concomitant]
     Active Substance: DEVICE
     Route: 058

REACTIONS (2)
  - Retinal haemorrhage [Unknown]
  - Hypoglycaemia [Unknown]
